FAERS Safety Report 5140734-7 (Version None)
Quarter: 2006Q4

REPORT INFORMATION
  Report Type: 
  Country: None (occurrence: None)
  Receive Date: 20061025
  Receipt Date: 20061012
  Transmission Date: 20070319
  Serious: Yes (Hospitalization)
  Sender: FDA-Public Use
  Company Number: 061013-0000873

PATIENT
  Age: 20 Month
  Sex: Male

DRUGS (2)
  1. DACTINOMYCIN [Suspect]
     Indication: RENAL NEOPLASM
     Dosage: 0.015 MG/KG; EVERYDAY FOR 3 DAYS; UNK
  2. VINCRISTINE [Concomitant]

REACTIONS (3)
  - GENERAL PHYSICAL HEALTH DETERIORATION [None]
  - LICHENOID KERATOSIS [None]
  - PYREXIA [None]
